FAERS Safety Report 15228362 (Version 1)
Quarter: 2018Q3

REPORT INFORMATION
  Report Type: Spontaneous
  Country: US (occurrence: US)
  Receive Date: 20180801
  Receipt Date: 20180801
  Transmission Date: 20181010
  Serious: Yes (Other)
  Sender: FDA-Public Use
  Company Number: PHEH2018US030795

PATIENT
  Age: 51 Year
  Sex: Male

DRUGS (1)
  1. KLONOPIN [Suspect]
     Active Substance: CLONAZEPAM
     Indication: SEIZURE
     Dosage: 0.5 MG, UNK
     Route: 065
     Dates: end: 201805

REACTIONS (2)
  - Drug ineffective [Unknown]
  - Palpitations [Unknown]

NARRATIVE: CASE EVENT DATE: 201805
